FAERS Safety Report 9687116 (Version 1)
Quarter: 2013Q4

REPORT INFORMATION
  Report Type: Spontaneous
  Country: US (occurrence: US)
  Receive Date: 20131113
  Receipt Date: 20131113
  Transmission Date: 20140711
  Serious: Yes (Other)
  Sender: FDA-Public Use
  Company Number: US-ASTRAZENECA-2013SE82070

PATIENT
  Sex: 0

DRUGS (3)
  1. NEXIUM [Suspect]
     Dosage: UNKNOWN
     Route: 048
  2. ALIMTA [Concomitant]
  3. AVASTIN [Concomitant]

REACTIONS (4)
  - Breast cancer [Unknown]
  - Lung neoplasm malignant [Unknown]
  - Adverse event [Unknown]
  - Drug dependence [Unknown]
